FAERS Safety Report 7618792-7 (Version None)
Quarter: 2011Q3

REPORT INFORMATION
  Report Type: 
  Country: None (occurrence: None)
  Receive Date: 20110718
  Receipt Date: 20110707
  Transmission Date: 20111222
  Serious: Yes (Death, Other)
  Sender: FDA-Public Use
  Company Number: ES-GENZYME-CLOF-1001684

PATIENT
  Sex: Female

DRUGS (7)
  1. CYTARABINE [Suspect]
     Indication: ACUTE MYELOID LEUKAEMIA RECURRENT
     Dosage: 1000 MG/M2, QD DAY 1-5; EVERY 4 WEEKS AFTER MYELOSUPPRESSION
     Route: 042
  2. EVOLTRA [Suspect]
     Dosage: 40 MG/M2, QD DAY 1-5; EVERY 4 WEEKS AFTER MYELOSUPPRESSION
     Route: 042
  3. CYTARABINE [Suspect]
     Dosage: 1000 MG/M2, QD DAY 1-5; EVERY 4 WEEKS AFTER MYELOSUPPRESSION
     Route: 042
  4. COTRIM [Concomitant]
     Indication: ANTIFUNGAL PROPHYLAXIS
     Dosage: UNK
     Route: 065
  5. VORICONAZOLE [Concomitant]
     Indication: ANTIFUNGAL PROPHYLAXIS
     Dosage: UNK
     Route: 065
  6. 5HT3 INHIBITOR [Concomitant]
     Indication: PROPHYLAXIS OF NAUSEA AND VOMITING
     Dosage: UNK; DURING CHEMOTHERAPY ADMINISTRATION
     Route: 065
  7. EVOLTRA [Suspect]
     Indication: ACUTE MYELOID LEUKAEMIA RECURRENT
     Dosage: 40 MG/M2, QD DAY 1-5; EVERY 4 WEEKS AFTER MYELOSUPPRESSION
     Route: 042

REACTIONS (7)
  - SEPTIC SHOCK [None]
  - ACUTE MYELOID LEUKAEMIA RECURRENT [None]
  - CARDIAC FAILURE CONGESTIVE [None]
  - FEBRILE NEUTROPENIA [None]
  - ASPARTATE AMINOTRANSFERASE INCREASED [None]
  - ALANINE AMINOTRANSFERASE INCREASED [None]
  - GAMMA-GLUTAMYLTRANSFERASE INCREASED [None]
